FAERS Safety Report 4468417-7 (Version None)
Quarter: 2004Q4

REPORT INFORMATION
  Report Type: 
  Country: None (occurrence: None)
  Receive Date: 20041007
  Receipt Date: 20040510
  Transmission Date: 20050328
  Serious: Yes (Other)
  Sender: FDA-Public Use
  Company Number: PHEH2004US05124

PATIENT
  Age: 66 Year
  Sex: Male

DRUGS (3)
  1. LAMISIL [Suspect]
     Indication: NAIL TINEA
     Dosage: UNK, BID
     Route: 048
     Dates: start: 19990101, end: 19990101
  2. GLUCOTROL [Concomitant]
  3. ATENOLOL [Concomitant]

REACTIONS (6)
  - DIFFICULTY IN WALKING [None]
  - PAIN [None]
  - PSORIASIS [None]
  - RASH [None]
  - SKIN BURNING SENSATION [None]
  - SKIN DISCOLOURATION [None]
